FAERS Safety Report 23797133 (Version 2)
Quarter: 2024Q2

REPORT INFORMATION
  Report Type: Spontaneous
  Country: TW (occurrence: TW)
  Receive Date: 20240430
  Receipt Date: 20240516
  Transmission Date: 20240716
  Serious: Yes (Other)
  Sender: FDA-Public Use
  Company Number: TW-VANTIVE-2024VAN016528

PATIENT
  Age: 31 Year
  Sex: Female

DRUGS (1)
  1. EXTRANEAL [Suspect]
     Active Substance: CALCIUM CHLORIDE\ICODEXTRIN\MAGNESIUM CHLORIDE\SODIUM CHLORIDE\SODIUM LACTATE
     Indication: Peritoneal dialysis
     Dosage: 1500 ML
     Route: 033

REACTIONS (16)
  - Acute generalised exanthematous pustulosis [Recovered/Resolved]
  - Exfoliative rash [Recovered/Resolved]
  - Papule [Recovered/Resolved]
  - Skin lesion [Recovered/Resolved]
  - Pustule [Recovered/Resolved]
  - Pruritus [Recovered/Resolved]
  - Parakeratosis [Recovered/Resolved]
  - Rash [Recovered/Resolved]
  - Erythema [Recovered/Resolved]
  - Skin exfoliation [Recovered/Resolved]
  - Nikolsky^s sign [Recovered/Resolved]
  - Paraesthesia [Recovered/Resolved]
  - Corneal abscess [Recovered/Resolved]
  - Acanthosis [Recovered/Resolved]
  - Leukocytosis [Unknown]
  - C-reactive protein increased [Unknown]
